FAERS Safety Report 21775143 (Version 1)
Quarter: 2022Q4

REPORT INFORMATION
  Report Type: Other
  Country: DE (occurrence: DE)
  Receive Date: 20221225
  Receipt Date: 20221225
  Transmission Date: 20230113
  Serious: Yes (Other)
  Sender: FDA-Public Use
  Company Number: DE-MACLEODS PHARMACEUTICALS US LTD-MAC2022038897

PATIENT

DRUGS (13)
  1. OLANZAPINE [Suspect]
     Active Substance: OLANZAPINE
     Indication: Product used for unknown indication
     Dosage: 5 MILLIGRAM, QD
     Route: 065
  2. TAMSULOSIN [Suspect]
     Active Substance: TAMSULOSIN
     Indication: Product used for unknown indication
     Dosage: 0.4 MILLIGRAM, QD, PROLONGED-RELEASE TABLET
     Route: 065
  3. ATORVASTATIN CALCIUM [Suspect]
     Active Substance: ATORVASTATIN CALCIUM
     Indication: Product used for unknown indication
     Dosage: 20 MILLIGRAM, QD
     Route: 065
  4. TELMISARTAN [Suspect]
     Active Substance: TELMISARTAN
     Indication: Product used for unknown indication
     Dosage: 40 MILLIGRAM, BID, 0.5 -0-0.5 A HALF TABLET IN THE MORNING AND A HALF TABLET IN THE EVENING
     Route: 065
  5. TELMISARTAN [Suspect]
     Active Substance: TELMISARTAN
     Dosage: 80 MILLIGRAM, QD
     Route: 065
  6. CARVEDILOL [Suspect]
     Active Substance: CARVEDILOL
     Indication: Product used for unknown indication
     Dosage: 0.5 DOSAGE FORM, BID, 0.5 -0-0.5 HALF TABLET IN THE MORNING AND A HALF TABLET IN THE EVENING
     Route: 065
  7. MOXONIDINE [Suspect]
     Active Substance: MOXONIDINE
     Indication: Product used for unknown indication
     Dosage: 0.2 MILLIGRAM, QD, TABLET
     Route: 065
  8. APIXABAN [Suspect]
     Active Substance: APIXABAN
     Indication: Product used for unknown indication
     Dosage: 5 MILLIGRAM, QD
     Route: 065
  9. VITAMIN D3 [Suspect]
     Active Substance: CHOLECALCIFEROL
     Indication: Product used for unknown indication
     Dosage: 20000 IU, Q.W.
     Route: 065
  10. NITRENDIPINE [Suspect]
     Active Substance: NITRENDIPINE
     Indication: Product used for unknown indication
     Dosage: UNK AS NECESSARY (BLOOD PRESSURE OVER 170 MMHG)
     Route: 065
  11. CHLORTHALIDONE [Suspect]
     Active Substance: CHLORTHALIDONE
     Indication: Product used for unknown indication
     Dosage: 25 MILLIGRAM, QD
     Route: 065
  12. ARGININE\FOLIC ACID [Suspect]
     Active Substance: ARGININE\FOLIC ACID
     Indication: Product used for unknown indication
     Dosage: UNK, QD, 2.4 G/ 600 MCG
     Route: 065
  13. VITAMIN C [Suspect]
     Active Substance: ASCORBIC ACID
     Indication: Product used for unknown indication
     Dosage: 1000 MILLIGRAM, QD
     Route: 065

REACTIONS (3)
  - Hemihypoaesthesia [Not Recovered/Not Resolved]
  - Hemiparaesthesia [Not Recovered/Not Resolved]
  - Wrong technique in product usage process [Unknown]
